FAERS Safety Report 9307192 (Version 2)
Quarter: 2013Q3

REPORT INFORMATION
  Report Type: Report from Study
  Country: CA (occurrence: CA)
  Receive Date: 20130524
  Receipt Date: 20130722
  Transmission Date: 20140515
  Serious: Yes (Other)
  Sender: FDA-Public Use
  Company Number: CA-ROCHE-1148827

PATIENT
  Age: 57 Year
  Sex: Female
  Weight: 118 kg

DRUGS (5)
  1. ACTEMRA [Suspect]
     Indication: RHEUMATOID ARTHRITIS
     Route: 042
     Dates: start: 20110204
  2. METHOTREXATE [Concomitant]
     Indication: RHEUMATOID ARTHRITIS
     Route: 065
     Dates: start: 2004
  3. CELEBREX [Concomitant]
  4. FOLIC ACID [Concomitant]
  5. PANTOLOC [Concomitant]

REACTIONS (6)
  - Pneumonia [Recovered/Resolved]
  - Dizziness [Unknown]
  - Musculoskeletal stiffness [Recovered/Resolved]
  - Tooth abscess [Recovered/Resolved]
  - Menopause [Not Recovered/Not Resolved]
  - Insomnia [Not Recovered/Not Resolved]
